FAERS Safety Report 23380521 (Version 1)
Quarter: 2024Q1

REPORT INFORMATION
  Report Type: Spontaneous
  Country: GB (occurrence: GB)
  Receive Date: 20240109
  Receipt Date: 20240109
  Transmission Date: 20240410
  Serious: No
  Sender: FDA-Public Use
  Company Number: None

PATIENT
  Age: 31 Year
  Sex: Female
  Weight: 60 kg

DRUGS (7)
  1. IBUPROFEN [Suspect]
     Active Substance: IBUPROFEN
     Indication: Product used for unknown indication
     Dosage: UNK (GEL)
     Route: 065
     Dates: start: 20210309
  2. AMITRIPTYLINE HYDROCHLORIDE [Concomitant]
     Active Substance: AMITRIPTYLINE HYDROCHLORIDE
     Indication: Ill-defined disorder
     Dosage: UNK, HS (TAKE ONE AT NIGHT)
     Route: 065
     Dates: start: 20220307, end: 20230925
  3. DIAZEPAM [Concomitant]
     Active Substance: DIAZEPAM
     Indication: Ill-defined disorder
     Dosage: UNK, PRN (TAKE ONE AS NEEDED BEFORE PROCEDURE UP TO BE)
     Route: 065
     Dates: start: 20230714, end: 20230811
  4. GABAPENTIN [Concomitant]
     Active Substance: GABAPENTIN
     Indication: Ill-defined disorder
     Dosage: UNK, TID (ONE 3X/DAY, GRADUALLY INCREASE EVERY 3 DAYS TO 3 THREE TIMES DAILY)
     Route: 065
     Dates: start: 20230926
  5. NAPROXEN [Concomitant]
     Active Substance: NAPROXEN
     Indication: Ill-defined disorder
     Dosage: UNK, BID (TAKE ONE TWICE DAILY WITH FOOD)
     Route: 048
     Dates: start: 20210628
  6. OMEPRAZOLE [Concomitant]
     Active Substance: OMEPRAZOLE
     Indication: Ill-defined disorder
     Dosage: UNK, QD (TAKE ONE DAILY)
     Route: 065
     Dates: start: 20210628
  7. SERTRALINE [Concomitant]
     Active Substance: SERTRALINE HYDROCHLORIDE
     Indication: Ill-defined disorder
     Dosage: 1 DOSAGE FORM, QD (TAKE ONE TABLET DAILY AS PER PSYCHIATRY)
     Route: 065
     Dates: start: 20210806, end: 20230926

REACTIONS (1)
  - Rash [Recovered/Resolved]
